FAERS Safety Report 5117794-2 (Version None)
Quarter: 2006Q3

REPORT INFORMATION
  Report Type: 
  Country: None (occurrence: None)
  Receive Date: 20060926
  Receipt Date: 20060919
  Transmission Date: 20061208
  Serious: Yes (Death, Hospitalization)
  Sender: FDA-Public Use
  Company Number: MEDI-0004705

PATIENT
  Age: 5 Month
  Sex: Female

DRUGS (8)
  1. SYNAGIS [Suspect]
     Indication: ANTIVIRAL PROPHYLAXIS
     Dosage: 50 MG, INTRAMUSCULAR
     Route: 030
     Dates: start: 20051018, end: 20051117
  2. SYNAGIS [Suspect]
     Indication: ANTIVIRAL PROPHYLAXIS
     Dosage: 50 MG, INTRAMUSCULAR
     Route: 030
     Dates: start: 20051018
  3. ATROVENT [Concomitant]
  4. CHLOROTHIAZIDE [Concomitant]
  5. SPIRONOLACTONE [Concomitant]
  6. DEXAMETHASONE TAB [Concomitant]
  7. SYTRON (SODIUM FEREDETATE) [Concomitant]
  8. DALVAVIT [Concomitant]

REACTIONS (3)
  - BRONCHIOLITIS [None]
  - CHRONIC OBSTRUCTIVE PULMONARY DISEASE [None]
  - RESPIRATORY SYNCYTIAL VIRUS INFECTION [None]
